FAERS Safety Report 10262830 (Version 2)
Quarter: 2014Q2

REPORT INFORMATION
  Report Type: Report from Study
  Country: US (occurrence: US)
  Receive Date: 20140626
  Receipt Date: 20140626
  Transmission Date: 20141212
  Serious: Yes (Death)
  Sender: FDA-Public Use
  Company Number: US-MYLANLABS-2013S1018319

PATIENT
  Age: 63 Year
  Sex: Male

DRUGS (5)
  1. CLOZAPINE TABLETS [Suspect]
     Route: 048
     Dates: start: 2011, end: 2013
  2. DIURETIC [Concomitant]
  3. ANTITHROMBOTIC AGENTS [Concomitant]
  4. CHOLESTEROL MEDICATION [Concomitant]
  5. ANTI-ASTHMATICS [Concomitant]

REACTIONS (1)
  - Death [Fatal]
